FAERS Safety Report 22589967 (Version 7)
Quarter: 2024Q1

REPORT INFORMATION
  Report Type: Spontaneous
  Country: US (occurrence: US)
  Receive Date: 20230612
  Receipt Date: 20240116
  Transmission Date: 20240409
  Serious: Yes (Other)
  Sender: FDA-Public Use
  Company Number: US-PFIZER INC-PV202300102757

PATIENT
  Age: 84 Year
  Sex: Male

DRUGS (2)
  1. TALZENNA [Suspect]
     Active Substance: TALAZOPARIB TOSYLATE
     Indication: Chemotherapy
     Dosage: UNK
     Dates: start: 20230701
  2. TALZENNA [Suspect]
     Active Substance: TALAZOPARIB TOSYLATE
     Indication: Prostate cancer
     Dosage: 0.75 MG, DAILY (TAKE 3 CAP)
     Route: 048

REACTIONS (4)
  - Blindness [Unknown]
  - Second primary malignancy [Unknown]
  - Malignant melanoma [Unknown]
  - Off label use [Unknown]
